FAERS Safety Report 4471485-X (Version None)
Quarter: 2004Q4

REPORT INFORMATION
  Report Type: 
  Country: None (occurrence: None)
  Receive Date: 20041006
  Receipt Date: 20040921
  Transmission Date: 20050328
  Serious: Yes (Other)
  Sender: FDA-Public Use
  Company Number: 800107

PATIENT
  Age: 49 Year
  Sex: Male
  Weight: 102.4 kg

DRUGS (9)
  1. DIANEAL [Suspect]
     Indication: PERITONEAL DIALYSIS
     Dosage: INTRAPERITONEAL
     Route: 033
     Dates: start: 20040801
  2. EPOGEN [Concomitant]
  3. REMERON [Concomitant]
  4. TRIPLE ANTIBIOTIC OINTMENT [Concomitant]
  5. MIRALAX [Concomitant]
  6. NATURAL FIBER [Concomitant]
  7. COLACE [Concomitant]
  8. CARCITRIOL [Concomitant]
  9. FLOMAX [Concomitant]

REACTIONS (3)
  - ABDOMINAL PAIN [None]
  - NAUSEA [None]
  - PERITONITIS [None]
